FAERS Safety Report 23078528 (Version 1)
Quarter: 2023Q4

REPORT INFORMATION
  Report Type: Spontaneous
  Country: US (occurrence: None)
  Receive Date: 20231016
  Receipt Date: 20231016
  Transmission Date: 20240110
  Serious: Yes (Other)
  Sender: FDA-Public Use
  Company Number: None

PATIENT
  Age: 66 Year

DRUGS (4)
  1. DUPIXENT [Suspect]
     Active Substance: DUPILUMAB
  2. ALBUTEROL HFA INH (200 PUFFS) 18GM [Concomitant]
  3. PREDNISONE 10MG**TABLETS [Concomitant]
  4. TRELEGY ELLIPTA 100-62.5MCG INH 30P [Concomitant]

REACTIONS (1)
  - Condition aggravated [None]

NARRATIVE: CASE EVENT DATE: 20230928
